FAERS Safety Report 16963830 (Version 3)
Quarter: 2020Q4

REPORT INFORMATION
  Report Type: Spontaneous
  Country: DE (occurrence: DE)
  Receive Date: 20191026
  Receipt Date: 20201218
  Transmission Date: 20210113
  Serious: Yes (Other)
  Sender: FDA-Public Use
  Company Number: DE-B.I. PHARMACEUTICALS,INC./RIDGEFIELD-2019-BI-107422

PATIENT
  Age: 55 Year
  Sex: Female

DRUGS (2)
  1. VARGATEF [Suspect]
     Active Substance: NINTEDANIB
     Indication: PRODUCT USED FOR UNKNOWN INDICATION
     Dates: start: 201902, end: 20191011
  2. DOCETAXEL. [Suspect]
     Active Substance: DOCETAXEL
     Indication: PRODUCT USED FOR UNKNOWN INDICATION
     Dates: start: 201902, end: 20190507

REACTIONS (4)
  - Malignant neoplasm progression [Unknown]
  - Dermatitis [Unknown]
  - Metastases to pharynx [Unknown]
  - Pneumonitis [Unknown]

NARRATIVE: CASE EVENT DATE: 201903
